FAERS Safety Report 16150899 (Version 1)
Quarter: 2019Q2

REPORT INFORMATION
  Report Type: Spontaneous
  Country: US (occurrence: US)
  Receive Date: 20190402
  Receipt Date: 20190402
  Transmission Date: 20190711
  Serious: No
  Sender: FDA-Public Use
  Company Number: US-SA-2019SA088728

PATIENT
  Sex: Male

DRUGS (7)
  1. COLCRYS [Concomitant]
     Active Substance: COLCHICINE
  2. EDARBI [Concomitant]
     Active Substance: AZILSARTAN KAMEDOXOMIL
  3. COLCHICINE. [Concomitant]
     Active Substance: COLCHICINE
  4. PRALUENT [Suspect]
     Active Substance: ALIROCUMAB
     Indication: CARDIOVASCULAR DISORDER
     Dosage: 75 MG, QOW
     Route: 058
  5. AMLODIPINE BESILATE [Concomitant]
     Active Substance: AMLODIPINE BESYLATE
  6. MITIGARE [Concomitant]
     Active Substance: COLCHICINE
  7. ALLOPURINOL. [Concomitant]
     Active Substance: ALLOPURINOL

REACTIONS (2)
  - Condition aggravated [Unknown]
  - Gout [Unknown]
